FAERS Safety Report 16018764 (Version 4)
Quarter: 2019Q3

REPORT INFORMATION
  Report Type: Spontaneous
  Country: US (occurrence: US)
  Receive Date: 20190228
  Receipt Date: 20190925
  Transmission Date: 20191004
  Serious: Yes (Other)
  Sender: FDA-Public Use
  Company Number: US-ASTRAZENECA-2018SF25637

PATIENT
  Sex: Male

DRUGS (32)
  1. PRILOSEC [Suspect]
     Active Substance: OMEPRAZOLE MAGNESIUM
     Indication: GASTROOESOPHAGEAL REFLUX DISEASE
     Route: 048
  2. ASPIRIN. [Concomitant]
     Active Substance: ASPIRIN
     Indication: PYREXIA
  3. METHOCARBAMOL. [Concomitant]
     Active Substance: METHOCARBAMOL
  4. LEVETIRACETAM. [Concomitant]
     Active Substance: LEVETIRACETAM
  5. ESOMEPRAZOLE. [Suspect]
     Active Substance: ESOMEPRAZOLE MAGNESIUM
     Dosage: GENERIC
     Route: 065
  6. CARVEDILOL. [Concomitant]
     Active Substance: CARVEDILOL
     Indication: BLOOD PRESSURE ABNORMAL
     Dates: start: 2015
  7. ASPIRIN. [Concomitant]
     Active Substance: ASPIRIN
     Indication: HEADACHE
  8. CETIRIZINE [Concomitant]
     Active Substance: CETIRIZINE HYDROCHLORIDE
  9. AMLODIPINE [Concomitant]
     Active Substance: AMLODIPINE BESYLATE
  10. ZYRTEC [Concomitant]
     Active Substance: CETIRIZINE HYDROCHLORIDE
  11. GABAPENTIN. [Concomitant]
     Active Substance: GABAPENTIN
  12. LANTUS [Concomitant]
     Active Substance: INSULIN GLARGINE
  13. SYMBICORT [Concomitant]
     Active Substance: BUDESONIDE\FORMOTEROL FUMARATE DIHYDRATE
  14. AMMONIUM LACTATE. [Concomitant]
     Active Substance: AMMONIUM LACTATE
  15. CARVEDILOL. [Concomitant]
     Active Substance: CARVEDILOL
  16. CLARITIN [Concomitant]
     Active Substance: LORATADINE
  17. PROTONIX [Concomitant]
     Active Substance: PANTOPRAZOLE SODIUM
  18. SEROQUEL [Concomitant]
     Active Substance: QUETIAPINE FUMARATE
  19. PRILOSEC [Suspect]
     Active Substance: OMEPRAZOLE MAGNESIUM
     Indication: GASTROOESOPHAGEAL REFLUX DISEASE
     Dosage: OMEPRAZOLE
     Route: 048
     Dates: start: 1989, end: 2017
  20. SODIUM BICARBONATE. [Concomitant]
     Active Substance: SODIUM BICARBONATE
  21. RANITIDINE. [Concomitant]
     Active Substance: RANITIDINE
     Dates: start: 2014
  22. ATENOLOL. [Concomitant]
     Active Substance: ATENOLOL
  23. DILTIAZEM. [Concomitant]
     Active Substance: DILTIAZEM
  24. FINASTERIDE. [Concomitant]
     Active Substance: FINASTERIDE
  25. NOVALOGUE [Concomitant]
  26. ISOSORBIDE. [Concomitant]
     Active Substance: ISOSORBIDE
  27. TUMS [Concomitant]
     Active Substance: CALCIUM CARBONATE
     Dosage: AS NEEDED
  28. ALBUTEROL. [Concomitant]
     Active Substance: ALBUTEROL
  29. IMDUR [Concomitant]
     Active Substance: ISOSORBIDE MONONITRATE
  30. HYDRALAZINE [Concomitant]
     Active Substance: HYDRALAZINE HYDROCHLORIDE
  31. LEVETIRACETAM. [Concomitant]
     Active Substance: LEVETIRACETAM
  32. QUETIAPINE. [Concomitant]
     Active Substance: QUETIAPINE

REACTIONS (5)
  - Chronic kidney disease [Unknown]
  - Acute kidney injury [Unknown]
  - Nephrogenic anaemia [Unknown]
  - Renal injury [Unknown]
  - End stage renal disease [Unknown]
